FAERS Safety Report 9201803 (Version 1)
Quarter: 2013Q2

REPORT INFORMATION
  Report Type: Report from Study
  Country: DE (occurrence: DE)
  Receive Date: 20130401
  Receipt Date: 20130401
  Transmission Date: 20140414
  Serious: Yes (Hospitalization, Other)
  Sender: FDA-Public Use
  Company Number: DE-ROCHE-1025399

PATIENT
  Age: 53 Year
  Sex: Female
  Weight: 81.5 kg

DRUGS (9)
  1. PEG-INTERFERON ALFA 2A [Suspect]
     Indication: CHRONIC HEPATITIS C
     Route: 058
     Dates: start: 20110719, end: 20110914
  2. PEG-INTERFERON ALFA 2A [Suspect]
     Route: 058
  3. RIBAVIRIN [Suspect]
     Indication: CHRONIC HEPATITIS C
     Route: 048
     Dates: start: 20110719, end: 20110914
  4. RIBAVIRIN [Suspect]
     Route: 048
  5. AMLODIPIN [Concomitant]
     Indication: HYPERTENSION
     Route: 048
     Dates: start: 2005
  6. EPROSARTAN [Concomitant]
     Indication: HYPERTENSION
     Route: 048
     Dates: start: 2005
  7. JODETTEN [Concomitant]
     Indication: HYPOTHYROIDISM
     Route: 048
     Dates: start: 1980
  8. BI 201335 [Suspect]
     Indication: CHRONIC HEPATITIS C
     Route: 048
     Dates: start: 20110719, end: 20110914
  9. BI 201335 [Suspect]
     Route: 048

REACTIONS (2)
  - Photosensitivity reaction [Recovered/Resolved]
  - Vomiting [Recovered/Resolved]
